FAERS Safety Report 13761210 (Version 3)
Quarter: 2017Q4

REPORT INFORMATION
  Report Type: Report from Study
  Country: US (occurrence: US)
  Receive Date: 20170717
  Receipt Date: 20171124
  Transmission Date: 20180320
  Serious: Yes (Death, Hospitalization)
  Sender: FDA-Public Use
  Company Number: US-ACTELION-A-NJ2017-156444

PATIENT
  Age: 65 Year
  Sex: Male
  Weight: 79.37 kg

DRUGS (5)
  1. VELETRI [Suspect]
     Active Substance: EPOPROSTENOL
     Indication: PULMONARY ARTERIAL HYPERTENSION
     Dosage: 53.3 NG/KG, PER MIN
     Route: 042
  2. REVATIO [Concomitant]
     Active Substance: SILDENAFIL CITRATE
  3. COUMADIN [Concomitant]
     Active Substance: WARFARIN SODIUM
  4. VELETRI [Suspect]
     Active Substance: EPOPROSTENOL
     Dosage: 68.2 NG/KG, PER MIN
     Route: 042
  5. NIFEDIPINE. [Concomitant]
     Active Substance: NIFEDIPINE

REACTIONS (12)
  - Death [Fatal]
  - Pleural effusion [Recovering/Resolving]
  - Hepatic congestion [Unknown]
  - Cardiac cirrhosis [Unknown]
  - Ascites [Unknown]
  - Right ventricular failure [Unknown]
  - Pain in jaw [Unknown]
  - Dyspnoea exertional [Unknown]
  - Dyspnoea [Unknown]
  - International normalised ratio increased [Unknown]
  - Chest tube insertion [Unknown]
  - Diarrhoea [Unknown]

NARRATIVE: CASE EVENT DATE: 20171109
